FAERS Safety Report 18268481 (Version 2)
Quarter: 2020Q3

REPORT INFORMATION
  Report Type: Report from Study
  Country: CA (occurrence: CA)
  Receive Date: 20200915
  Receipt Date: 20200916
  Transmission Date: 20201103
  Serious: Yes (Death)
  Sender: FDA-Public Use
  Company Number: CA-PFIZER INC-2020351440

PATIENT
  Age: 90 Year
  Sex: Male

DRUGS (2)
  1. TRASTUZUMAB. [Suspect]
     Active Substance: TRASTUZUMAB
     Indication: GALLBLADDER CANCER
     Dosage: 660 MG 1 EVERY 3 WEEKS
     Route: 042
  2. PERJETA [Suspect]
     Active Substance: PERTUZUMAB
     Indication: GALLBLADDER CANCER
     Dosage: 840 MG 1 EVERY 3 WEEKS
     Route: 042

REACTIONS (17)
  - Death [Fatal]
  - Chills [Fatal]
  - Nausea [Fatal]
  - Tachypnoea [Fatal]
  - Blood pressure systolic increased [Fatal]
  - Chest pain [Fatal]
  - Injection site mass [Fatal]
  - Intentional product use issue [Unknown]
  - Ill-defined disorder [Fatal]
  - Respiratory rate increased [Fatal]
  - Off label use [Unknown]
  - Skin discolouration [Fatal]
  - Asthenia [Fatal]
  - Fatigue [Fatal]
  - Oxygen saturation decreased [Fatal]
  - Dyspnoea [Fatal]
  - Pollakiuria [Fatal]
